FAERS Safety Report 6747101-0 (Version None)
Quarter: 2010Q2

REPORT INFORMATION
  Report Type: 
  Country: None (occurrence: None)
  Receive Date: 20100528
  Receipt Date: 20100518
  Transmission Date: 20101027
  Serious: Yes (Hospitalization)
  Sender: FDA-Public Use
  Company Number: US-GENZYME-CART-1000040

PATIENT

DRUGS (2)
  1. CARTICEL [Suspect]
     Indication: CARTILAGE INJURY
     Dosage: UNK
     Route: 014
     Dates: start: 20100504, end: 20100504
  2. CARTICEL [Suspect]
     Dosage: UNK
     Route: 014
     Dates: start: 20070814, end: 20070814

REACTIONS (1)
  - ARTHRITIS INFECTIVE [None]
